FAERS Safety Report 15725701 (Version 1)
Quarter: 2018Q4

REPORT INFORMATION
  Report Type: Spontaneous
  Country: US (occurrence: US)
  Receive Date: 20181215
  Receipt Date: 20181215
  Transmission Date: 20190205
  Serious: No
  Sender: FDA-Public Use
  Company Number: US-PRINSTON PHARMACEUTICAL INC.-2018PRN01501

PATIENT
  Sex: Female
  Weight: 63.49 kg

DRUGS (7)
  1. BIOTIN [Concomitant]
     Active Substance: BIOTIN
  2. LAMICTAL [Concomitant]
     Active Substance: LAMOTRIGINE
  3. DULOXETINE. [Suspect]
     Active Substance: DULOXETINE
     Indication: SPINAL OPERATION
     Dosage: 30 MG, 1X/DAY
     Route: 048
     Dates: start: 20181002, end: 20181010
  4. MELATONIN [Concomitant]
     Active Substance: MELATONIN
     Indication: INSOMNIA
  5. DULOXETINE. [Suspect]
     Active Substance: DULOXETINE
     Indication: NEURALGIA
     Dosage: 30 MG, 2X/DAY
     Route: 048
     Dates: start: 20181008
  6. IRON [Concomitant]
     Active Substance: IRON
  7. KEPPRA [Concomitant]
     Active Substance: LEVETIRACETAM

REACTIONS (5)
  - Abdominal discomfort [Not Recovered/Not Resolved]
  - Nausea [Not Recovered/Not Resolved]
  - Fatigue [Not Recovered/Not Resolved]
  - Malaise [Not Recovered/Not Resolved]
  - Drug ineffective [Recovered/Resolved]
